FAERS Safety Report 12849454 (Version 1)
Quarter: 2016Q4

REPORT INFORMATION
  Report Type: Spontaneous
  Country: US (occurrence: US)
  Receive Date: 20161014
  Receipt Date: 20161014
  Transmission Date: 20170207
  Serious: Yes (Hospitalization)
  Sender: FDA-Public Use
  Company Number: US-GILEAD-2016-0237854

PATIENT
  Age: 87 Year
  Sex: Female

DRUGS (2)
  1. RANEXA [Suspect]
     Active Substance: RANOLAZINE
     Indication: PRODUCT USED FOR UNKNOWN INDICATION
     Dosage: 1000 UNK, UNK
     Route: 048
  2. RANEXA [Suspect]
     Active Substance: RANOLAZINE
     Dosage: 500 MG, UNK
     Route: 048

REACTIONS (14)
  - Chromaturia [Unknown]
  - Off label use [Unknown]
  - Amnesia [Unknown]
  - Speech disorder [Unknown]
  - Chills [Unknown]
  - Accidental overdose [Unknown]
  - Dysphemia [Unknown]
  - Urinary tract infection [Unknown]
  - Malaise [Unknown]
  - Wrong technique in product usage process [Unknown]
  - Aphasia [Unknown]
  - Vomiting [Unknown]
  - Dehydration [Unknown]
  - Urinary tract disorder [Unknown]
